FAERS Safety Report 4466661-6 (Version None)
Quarter: 2004Q4

REPORT INFORMATION
  Report Type: 
  Country: None (occurrence: None)
  Receive Date: 20041006
  Receipt Date: 20040930
  Transmission Date: 20050328
  Serious: Yes (Hospitalization)
  Sender: FDA-Public Use
  Company Number: IT-ROCHE-381823

PATIENT
  Age: 52 Year
  Sex: Female

DRUGS (1)
  1. ROCEPHIN [Suspect]
     Indication: BRONCHITIS
     Dosage: FORMULATION REPORTED AS VIAL. ONLY TAKEN ONCE.
     Route: 030
     Dates: start: 20040921, end: 20040921

REACTIONS (3)
  - ANGIONEUROTIC OEDEMA [None]
  - DYSPNOEA [None]
  - LARYNGOSPASM [None]
